FAERS Safety Report 9554312 (Version 2)
Quarter: 2013Q3

REPORT INFORMATION
  Report Type: Spontaneous
  Country: US (occurrence: US)
  Receive Date: 20130925
  Receipt Date: 20130927
  Transmission Date: 20140515
  Serious: Yes (Other)
  Sender: FDA-Public Use
  Company Number: CHPA2013US014646

PATIENT
  Age: 55 Year
  Sex: Female

DRUGS (4)
  1. VOLTAREN GEL [Suspect]
     Indication: ARTHRITIS
     Dosage: 4 G, 5-6X/DAY
     Route: 061
     Dates: start: 201306
  2. VOLTAREN GEL [Suspect]
     Indication: OFF LABEL USE
     Dosage: 2 G, UNK
     Route: 061
     Dates: start: 201309
  3. VOLTAREN GEL [Suspect]
     Dosage: 4 G, UNK
     Route: 061
     Dates: start: 201309
  4. DEXILANT [Concomitant]
     Indication: HYPERCHLORHYDRIA
     Dosage: UNK,UNK
     Route: 065

REACTIONS (4)
  - Blood cholesterol abnormal [Recovering/Resolving]
  - Therapeutic response unexpected [Unknown]
  - Incorrect dose administered [Unknown]
  - Drug administered at inappropriate site [Unknown]
